FAERS Safety Report 9225152 (Version 3)
Quarter: 2013Q2

REPORT INFORMATION
  Report Type: Spontaneous
  Country: JP (occurrence: None)
  Receive Date: 20130409
  Receipt Date: 20130610
  Transmission Date: 20140414
  Serious: Yes (Other)
  Sender: FDA-Public Use
  Company Number: 2013-000970

PATIENT
  Age: 74 Year
  Sex: Female

DRUGS (8)
  1. BENET [Suspect]
     Indication: OSTEOPOROSIS
     Route: 048
     Dates: start: 20050211
  2. ALFACALCIDOL (ALFACALCIDOL) [Concomitant]
  3. EXCELASE (ENZYMES NOS) [Concomitant]
  4. MEBUTIT (TRIMEBUTINE MALEATE) [Concomitant]
  5. TIQUIZIUM BROMIDE (TIQUIZIUM BROMIDE) [Concomitant]
  6. BIOFERMIN   /00275501/ (BACILLUS SUBTILIS, LACTOBACILLUS ACIDOPHILUS, STREPTOCOCCUS FAECALIS) [Concomitant]
  7. ACINON (NIZATIDINE) [Concomitant]
  8. PROMAC   /01312301/ (POLAPREZINC) [Concomitant]

REACTIONS (5)
  - Otitis externa [None]
  - Bone erosion [None]
  - Primary sequestrum [None]
  - External ear inflammation [None]
  - Impaired healing [None]
